FAERS Safety Report 7745823-6 (Version None)
Quarter: 2011Q3

REPORT INFORMATION
  Report Type: 
  Country: None (occurrence: None)
  Receive Date: 20110830
  Receipt Date: 20110823
  Transmission Date: 20111222
  Serious: Yes (Hospitalization)
  Sender: FDA-Public Use
  Company Number: 2011SP039809

PATIENT
  Sex: Male

DRUGS (2)
  1. IMPLANON [Suspect]
     Indication: CONTRACEPTION
     Dosage: 1 DF
     Dates: start: 20100921
  2. LAMICTAL [Concomitant]

REACTIONS (2)
  - EPILEPSY [None]
  - CONDITION AGGRAVATED [None]
